FAERS Safety Report 5398585-4 (Version None)
Quarter: 2007Q3

REPORT INFORMATION
  Report Type: 
  Country: None (occurrence: None)
  Receive Date: 20070726
  Receipt Date: 20061010
  Transmission Date: 20080115
  Serious: No
  Sender: FDA-Public Use
  Company Number: US-AMGEN-KDL197686

PATIENT
  Sex: Male

DRUGS (5)
  1. PROCRIT [Suspect]
     Indication: ANAEMIA
     Route: 058
  2. ASACOL [Concomitant]
     Route: 048
  3. AZATHIOPRINE [Concomitant]
  4. NEURONTIN [Concomitant]
     Route: 048
  5. IRON [Concomitant]
     Route: 048

REACTIONS (3)
  - CONDITION AGGRAVATED [None]
  - DRUG INEFFECTIVE [None]
  - PYREXIA [None]
